FAERS Safety Report 4712185-8 (Version None)
Quarter: 2005Q3

REPORT INFORMATION
  Report Type: 
  Country: None (occurrence: None)
  Receive Date: 20050712
  Receipt Date: 20050630
  Transmission Date: 20060218
  Serious: Yes (Life-Threatening, Hospitalization)
  Sender: FDA-Public Use
  Company Number: DE-ROCHE-409285

PATIENT
  Age: 38 Year
  Sex: Female

DRUGS (3)
  1. MYCOPHENOLATE MOFETIL [Suspect]
     Route: 065
     Dates: start: 20040923
  2. PROGRAF [Concomitant]
  3. CORTICOSTEROIDS [Concomitant]

REACTIONS (2)
  - DEEP VEIN THROMBOSIS [None]
  - LYMPHOCELE [None]
